FAERS Safety Report 23708118 (Version 1)
Quarter: 2024Q2

REPORT INFORMATION
  Report Type: Report from Study
  Country: US (occurrence: US)
  Receive Date: 20240404
  Receipt Date: 20240404
  Transmission Date: 20240716
  Serious: Yes (Hospitalization)
  Sender: FDA-Public Use
  Company Number: US-TEVA-VS-3175052

PATIENT
  Age: 61 Year
  Sex: Male

DRUGS (7)
  1. AUSTEDO [Suspect]
     Active Substance: DEUTETRABENAZINE
     Indication: Tardive dyskinesia
     Dosage: TAKE TWO TABLETS BY MOUTH TWICE A DAY.
     Route: 048
  2. BENZTROPINE [Concomitant]
     Active Substance: BENZTROPINE
  3. GABAPENTIN [Concomitant]
     Active Substance: GABAPENTIN
  4. HALOPERIDOL [Concomitant]
     Active Substance: HALOPERIDOL
  5. MIRTAZAPINE [Concomitant]
     Active Substance: MIRTAZAPINE
  6. PRAZOSIN HYDROCHLORIDE [Concomitant]
     Active Substance: PRAZOSIN HYDROCHLORIDE
  7. Trazodone HC [Concomitant]

REACTIONS (11)
  - Arteriosclerosis [Not Recovered/Not Resolved]
  - Nausea [Not Recovered/Not Resolved]
  - Constipation [Not Recovered/Not Resolved]
  - Hypertension [Not Recovered/Not Resolved]
  - Chills [Not Recovered/Not Resolved]
  - Dysphagia [Unknown]
  - Cough [Unknown]
  - Product dose omission issue [Unknown]
  - Wrong technique in product usage process [Unknown]
  - Decreased appetite [Unknown]
  - Disturbance in attention [Unknown]
